FAERS Safety Report 4425396-6 (Version None)
Quarter: 2004Q3

REPORT INFORMATION
  Report Type: 
  Country: None (occurrence: None)
  Receive Date: 20040813
  Receipt Date: 20040618
  Transmission Date: 20050211
  Serious: Yes (Life-Threatening, Hospitalization)
  Sender: FDA-Public Use
  Company Number: JP-GLAXOSMITHKLINE-B0336488A

PATIENT
  Age: 80 Year
  Sex: Female

DRUGS (7)
  1. PAXIL [Suspect]
     Indication: DEPRESSION
     Route: 048
     Dates: start: 20040517, end: 20040530
  2. ALDECIN [Concomitant]
     Indication: ASTHMA
     Dosage: 200MCG FOUR TIMES PER DAY
     Route: 055
     Dates: start: 20040510
  3. ONON [Concomitant]
     Indication: ASTHMA
     Dosage: 4 PER DAY
     Route: 048
     Dates: start: 20040510, end: 20040530
  4. HOKUNALIN [Concomitant]
     Indication: ASTHMA
     Dosage: 2MG PER DAY
     Route: 062
     Dates: start: 20040510, end: 20040530
  5. TICLOPIDINE HCL [Concomitant]
     Indication: CEREBRAL INFARCTION
     Dosage: 100MG TWICE PER DAY
     Route: 048
     Dates: start: 20040510, end: 20040530
  6. MYSLEE [Concomitant]
     Indication: INSOMNIA
     Dosage: 10MG PER DAY
     Route: 048
     Dates: start: 20040510, end: 20040530
  7. ETIZOLAM [Concomitant]
     Indication: ANXIETY DISORDER
     Dosage: .5MG TWICE PER DAY
     Route: 048
     Dates: end: 20040530

REACTIONS (9)
  - ALANINE AMINOTRANSFERASE INCREASED [None]
  - ASPARTATE AMINOTRANSFERASE INCREASED [None]
  - BLOOD ALKALINE PHOSPHATASE INCREASED [None]
  - BLOOD BILIRUBIN INCREASED [None]
  - BLOOD LACTATE DEHYDROGENASE INCREASED [None]
  - JAUNDICE [None]
  - LEUKOPENIA [None]
  - PSYCHIATRIC SYMPTOM [None]
  - SUICIDE ATTEMPT [None]
